FAERS Safety Report 6450034-0 (Version None)
Quarter: 2009Q4

REPORT INFORMATION
  Report Type: 
  Country: None (occurrence: None)
  Receive Date: 20091123
  Receipt Date: 20091113
  Transmission Date: 20100525
  Serious: Yes (Other)
  Sender: FDA-Public Use
  Company Number: US-JNJFOC-20091004977

PATIENT
  Sex: Female
  Weight: 81.19 kg

DRUGS (8)
  1. ELMIRON [Suspect]
     Indication: CYSTITIS INTERSTITIAL
     Route: 048
  2. DESYREL [Concomitant]
     Route: 048
  3. PROPRANOLOL [Concomitant]
     Indication: BLOOD PRESSURE
     Route: 048
  4. DEPAKOTE [Concomitant]
     Route: 048
  5. VALTREX [Concomitant]
     Route: 048
  6. SYNTHROID [Concomitant]
     Route: 048
  7. UNKNOWN MEDICATION [Concomitant]
     Route: 048
  8. AMBIEN CR [Concomitant]

REACTIONS (8)
  - ABDOMINAL PAIN UPPER [None]
  - ASTHENIA [None]
  - DIZZINESS [None]
  - DYSPNOEA [None]
  - HEART RATE INCREASED [None]
  - HEART RATE IRREGULAR [None]
  - PHARYNGEAL OEDEMA [None]
  - PRURITUS GENERALISED [None]
